FAERS Safety Report 7261779-7 (Version None)
Quarter: 2011Q1

REPORT INFORMATION
  Report Type: 
  Country: None (occurrence: None)
  Receive Date: 20110130
  Receipt Date: 20101025
  Transmission Date: 20110831
  Serious: No
  Sender: FDA-Public Use
  Company Number: US-ABBOTT-10P-163-0681245-00

PATIENT
  Age: 72 Year
  Sex: Female

DRUGS (9)
  1. HUMIRA [Suspect]
     Indication: RHEUMATOID ARTHRITIS
     Dates: start: 20100514, end: 20100910
  2. LANTUS [Concomitant]
     Indication: DIABETES MELLITUS
  3. TRICOR [Concomitant]
     Indication: BLOOD CHOLESTEROL INCREASED
  4. ZETIA [Concomitant]
     Indication: BLOOD CHOLESTEROL INCREASED
  5. BENADRYL [Concomitant]
     Indication: PRODUCT USED FOR UNKNOWN INDICATION
     Dosage: 2 HOURS PRIOR TO HUMIRA INJECTION
  6. ETODOLAC [Concomitant]
     Indication: ARTHRITIS
  7. OXYCODONE [Concomitant]
     Indication: PAIN
  8. HUMALOG [Concomitant]
     Indication: DIABETES MELLITUS
  9. VITAMIN D [Concomitant]
     Indication: PRODUCT USED FOR UNKNOWN INDICATION

REACTIONS (9)
  - PRURITUS [None]
  - SWELLING FACE [None]
  - URTICARIA [None]
  - INJECTION SITE PRURITUS [None]
  - FLUSHING [None]
  - ERYTHEMA [None]
  - ONYCHOMYCOSIS [None]
  - MALAISE [None]
  - RASH MACULAR [None]
